FAERS Safety Report 19810678 (Version 1)
Quarter: 2021Q3

REPORT INFORMATION
  Report Type: Spontaneous
  Country: AU (occurrence: AU)
  Receive Date: 20210909
  Receipt Date: 20210909
  Transmission Date: 20211014
  Serious: Yes (Other)
  Sender: FDA-Public Use
  Company Number: AU-PFIZER INC-202101142093

PATIENT
  Age: 80 Year
  Sex: Female

DRUGS (5)
  1. METHOTREXATE. [Suspect]
     Active Substance: METHOTREXATE
     Indication: OCULAR LYMPHOMA
     Dosage: UNK, CYCLIC (2 CYCLES OF SMILE CHEMOTHERAPY, WITH 50% REDUCED DOSES)
     Route: 037
  2. L?ASPARAGINASE [Suspect]
     Active Substance: ASPARAGINASE
     Indication: OCULAR LYMPHOMA
     Dosage: UNK, CYCLIC (2 CYCLES OF SMILE CHEMOTHERAPY, WITH 50% REDUCED DOSES)
  3. ETOPOSIDE. [Suspect]
     Active Substance: ETOPOSIDE
     Indication: OCULAR LYMPHOMA
     Dosage: UNK, CYCLIC (2 CYCLES OF SMILE CHEMOTHERAPY, WITH 50% REDUCED DOSES)
  4. DEXAMETHASONE. [Suspect]
     Active Substance: DEXAMETHASONE
     Indication: OCULAR LYMPHOMA
     Dosage: UNK, CYCLIC; (2 CYCLES OF SMILE CHEMOTHERAPY, WITH 50% REDUCED DOSES)
  5. IFOSFAMIDE. [Suspect]
     Active Substance: IFOSFAMIDE
     Indication: OCULAR LYMPHOMA
     Dosage: UNK, CYCLIC (2 CYCLES OF SMILE CHEMOTHERAPY, WITH 50% REDUCED DOSES)

REACTIONS (3)
  - Supraventricular tachycardia [Unknown]
  - Drug intolerance [Unknown]
  - Fluid overload [Unknown]
